FAERS Safety Report 7017485-7 (Version None)
Quarter: 2010Q3

REPORT INFORMATION
  Report Type: 
  Country: None (occurrence: None)
  Receive Date: 20100928
  Receipt Date: 20100920
  Transmission Date: 20110219
  Serious: Yes (Other)
  Sender: FDA-Public Use
  Company Number: IE-PFIZER INC-2010100693

PATIENT
  Age: 58 Year
  Sex: Male
  Weight: 70 kg

DRUGS (11)
  1. LIPITOR [Suspect]
     Dosage: 80 MG, 1X/DAY
     Route: 048
     Dates: start: 20091201
  2. LIPITOR [Suspect]
     Dosage: 40 MG, UNK
  3. BISOPROLOL [Concomitant]
     Dosage: 1.25 MG, 1X/DAY
     Route: 048
     Dates: start: 20091201
  4. HALOPERIDOL [Concomitant]
     Dosage: UNK
  5. ACETYLSALICYLIC ACID [Concomitant]
     Dosage: 75 MG, 1X/DAY
     Route: 048
     Dates: start: 20091201
  6. RAMIPRIL [Concomitant]
     Dosage: 1.25 MG, 1X/DAY
     Route: 048
     Dates: start: 20091201
  7. CLOPIDOGREL [Concomitant]
     Dosage: 75 MG, 1X/DAY
     Route: 048
     Dates: start: 20091201
  8. RANITIDINE [Concomitant]
     Dosage: 150 MG, 2X/DAY
     Route: 048
  9. FORMOTEROL W/BUDESONIDE [Concomitant]
     Indication: ASTHMA
     Dosage: 2 DF, 2X/DAY
     Route: 055
  10. FLUTICASONE [Concomitant]
     Indication: RHINITIS ALLERGIC
     Dosage: 2 DF, 1X/DAY IN BOTH NOSTRILS
     Route: 045
  11. BUDESONIDE [Concomitant]
     Dosage: UNK

REACTIONS (3)
  - BACK PAIN [None]
  - GASTROINTESTINAL DISORDER [None]
  - MUSCULOSKELETAL CHEST PAIN [None]
